FAERS Safety Report 4384269-8 (Version None)
Quarter: 2004Q2

REPORT INFORMATION
  Report Type: 
  Country: None (occurrence: None)
  Receive Date: 20040618
  Receipt Date: 20040607
  Transmission Date: 20050107
  Serious: Yes (Death, Hospitalization)
  Sender: FDA-Public Use
  Company Number: 6009148

PATIENT
  Age: 79 Year
  Sex: Male

DRUGS (4)
  1. CARDENSIEL 2.5 MG (TABLETS) (BISOPROLOL) [Suspect]
     Indication: DRUG USE FOR UNKNOWN INDICATION
     Dosage: 1. 5 DOSAGE
     Route: 048
     Dates: start: 20040420
  2. ZOCOR [Suspect]
     Indication: HYPERCHOLESTEROLAEMIA
     Dosage: 40,000 MG (40 MG, 1 IN 1 D)
     Route: 048
     Dates: start: 20040417, end: 20040505
  3. PLAVIX [Suspect]
     Indication: DRUG USE FOR UNKNOWN INDICATION
     Dosage: 75,000 MG (75 MG, 1 IN 1 D)
     Route: 048
     Dates: start: 20040417, end: 20040515
  4. ASPEGIC 1000 [Suspect]
     Indication: DRUG USE FOR UNKNOWN INDICATION
     Dosage: 1 DOSAGE FORMS
     Route: 048
     Dates: start: 20040420, end: 20040515

REACTIONS (10)
  - ABDOMINAL PAIN UPPER [None]
  - ANOREXIA [None]
  - ASTHENIA [None]
  - CHOLELITHIASIS [None]
  - DYSPHAGIA [None]
  - HEPATIC ENCEPHALOPATHY [None]
  - HEPATIC FAILURE [None]
  - HEPATITIS TOXIC [None]
  - PLATELET COUNT DECREASED [None]
  - THROMBOCYTOPENIA [None]
